FAERS Safety Report 9292671 (Version 1)
Quarter: 2013Q1

REPORT INFORMATION
  Report Type: Spontaneous
  Country: US (occurrence: None)
  Receive Date: 20121212
  Receipt Date: 20121212
  Transmission Date: 20140127
  Serious: No
  Sender: FDA-Public Use
  Company Number: 1210USA006105

PATIENT
  Age: 48 Year
  Sex: Male
  Weight: 190 kg

DRUGS (1)
  1. VICTRELIS(BOCEPREVIR) CAPSULE [Suspect]
     Indication: HEPATITIS C
     Route: 048
     Dates: start: 20120929

REACTIONS (2)
  - Nausea [None]
  - Fatigue [None]
